FAERS Safety Report 4727280-7 (Version None)
Quarter: 2005Q3

REPORT INFORMATION
  Report Type: 
  Country: None (occurrence: None)
  Receive Date: 20050726
  Receipt Date: 20050713
  Transmission Date: 20060218
  Serious: Yes (Other)
  Sender: FDA-Public Use
  Company Number: 2005100345

PATIENT
  Age: 45 Year
  Sex: Female

DRUGS (5)
  1. DEPO-MEDROL [Suspect]
     Indication: MYOFASCIAL PAIN SYNDROME
     Dosage: 40 MG (ONE DOSE), INTRAMUSCULAR
     Route: 030
     Dates: start: 20050607, end: 20050607
  2. FENTANYL [Suspect]
     Indication: SEDATION
     Dosage: INTRAVENOUS
     Route: 042
     Dates: start: 20050607, end: 20050607
  3. MARCAINE [Suspect]
     Indication: MYOFASCIAL PAIN SYNDROME
     Dosage: 5 CC (ONE DOSE), INTRAMUSCULAR
     Route: 030
     Dates: start: 20050607, end: 20050607
  4. ALL OTHER THERAPEUTIC PRODUCTS (ALL OTHER THERAPEUTIC PRODUCTS) [Suspect]
     Indication: MYOFASCIAL PAIN SYNDROME
     Dosage: 75 UNITS (ONE DOES), INTRAMUSCULAR
     Route: 030
     Dates: start: 20050607, end: 20050607
  5. VERSED [Suspect]
     Indication: SEDATION
     Dosage: INTRAVENOUS
     Route: 042
     Dates: start: 20050607, end: 20050607

REACTIONS (28)
  - ABDOMINAL PAIN [None]
  - ACNE [None]
  - ASTHENIA [None]
  - BURNING SENSATION [None]
  - CEREBROVASCULAR ACCIDENT [None]
  - CHEST DISCOMFORT [None]
  - COUGH [None]
  - DRUG HYPERSENSITIVITY [None]
  - DYSKINESIA [None]
  - DYSPNOEA [None]
  - EMOTIONAL DISTRESS [None]
  - FEELING ABNORMAL [None]
  - FEELING HOT [None]
  - FOOD POISONING [None]
  - HEADACHE [None]
  - HICCUPS [None]
  - HYPOAESTHESIA [None]
  - INCISION SITE COMPLICATION [None]
  - INJECTION SITE PAIN [None]
  - MYOFASCIAL PAIN SYNDROME [None]
  - NAUSEA [None]
  - NEUROMA [None]
  - PAIN [None]
  - POST PROCEDURAL COMPLICATION [None]
  - SPEECH DISORDER [None]
  - TRANSIENT ISCHAEMIC ATTACK [None]
  - VIRAL INFECTION [None]
  - VISUAL DISTURBANCE [None]
